FAERS Safety Report 7643788-9 (Version None)
Quarter: 2011Q3

REPORT INFORMATION
  Report Type: 
  Country: None (occurrence: None)
  Receive Date: 20110722
  Receipt Date: 20110707
  Transmission Date: 20111222
  Serious: Yes (Death, Hospitalization, Other)
  Sender: FDA-Public Use
  Company Number: 2007S1008350

PATIENT
  Age: 67 Year
  Sex: Female
  Weight: 63.5036 kg

DRUGS (13)
  1. ASPIRIN CHILDREN [Concomitant]
  2. ALBUTEROL [Concomitant]
  3. HYDROCHLOROTHIAZIDE [Concomitant]
  4. CENTRUM SILVER /01292501/ [Concomitant]
  5. PRILOSEC [Concomitant]
  6. ZOCOR [Concomitant]
  7. CARTIA XT [Concomitant]
  8. PLAVIX [Concomitant]
  9. SODIUM PHOSPHATE MONOBASIC MONOHYDRATE AND NAPO4 DIBASIC ANHYDROUS [Suspect]
     Dosage: PO
     Route: 048
     Dates: start: 20071030, end: 20071031
  10. TRAZODONE HYDROCHLORIDE [Concomitant]
  11. LEXAPRO [Concomitant]
  12. PROTRIPTYLINE [Concomitant]
  13. ENALAPRIL MALEATE [Concomitant]

REACTIONS (15)
  - HYPERPHOSPHATAEMIA [None]
  - HYPOTENSION [None]
  - ARTERIOSCLEROSIS [None]
  - ELECTROLYTE IMBALANCE [None]
  - EMBOLISM [None]
  - INFLAMMATORY BOWEL DISEASE [None]
  - POLYP [None]
  - DEHYDRATION [None]
  - THROMBOSIS [None]
  - RENAL FAILURE [None]
  - GASTROINTESTINAL NECROSIS [None]
  - SEPSIS [None]
  - ABDOMINAL PAIN [None]
  - NAUSEA [None]
  - VOMITING [None]
